FAERS Safety Report 8004039-9 (Version None)
Quarter: 2011Q4

REPORT INFORMATION
  Report Type: 
  Country: None (occurrence: None)
  Receive Date: 20111222
  Receipt Date: 20111220
  Transmission Date: 20120403
  Serious: Yes (Other)
  Sender: FDA-Public Use
  Company Number: GB-MERCK-1112GBR00062

PATIENT
  Age: 58 Year
  Sex: Male
  Weight: 73 kg

DRUGS (18)
  1. RAMIPRIL [Concomitant]
     Route: 065
  2. BENDROFLUMETHIAZIDE [Concomitant]
     Route: 065
  3. DIPIPROVERINE DIHYDROCHLORIDE [Concomitant]
     Route: 065
  4. BIMATOPROST [Concomitant]
     Route: 065
  5. BUDESONIDE AND FORMOTEROL FUMARATE [Concomitant]
     Route: 055
  6. BRINZOLAMIDE [Concomitant]
     Route: 065
  7. ZETIA [Concomitant]
     Route: 048
  8. METFORMIN HYDROCHLORIDE [Concomitant]
     Route: 065
  9. POLYVINYL ALCOHOL [Concomitant]
     Route: 065
  10. ALLOPURINOL [Concomitant]
     Route: 065
  11. LANOLIN AND MINERAL OIL AND PETROLATUM, WHITE [Concomitant]
     Route: 065
  12. ALBUTEROL SULFATE [Concomitant]
     Route: 055
  13. ATORVASTATIN [Concomitant]
     Route: 065
  14. ACETAMINOPHEN AND CODEINE PHOSPHATE [Concomitant]
     Route: 065
  15. AMLODIPINE BESYLATE [Concomitant]
     Route: 065
  16. PIOGLITAZONE HYDROCHLORIDE [Concomitant]
     Route: 065
  17. JANUVIA [Suspect]
     Route: 048
  18. DOXAZOSIN MESYLATE [Concomitant]
     Route: 065

REACTIONS (3)
  - DISORIENTATION [None]
  - DIZZINESS [None]
  - HALLUCINATION [None]
